FAERS Safety Report 21973481 (Version 1)
Quarter: 2023Q1

REPORT INFORMATION
  Report Type: Report from Study
  Country: CA (occurrence: CA)
  Receive Date: 20230209
  Receipt Date: 20230209
  Transmission Date: 20230418
  Serious: Yes (Death)
  Sender: FDA-Public Use
  Company Number: CA-BEH-2023155130

PATIENT
  Age: 78 Year
  Sex: Female
  Weight: 65.3 kg

DRUGS (1)
  1. HIZENTRA [Suspect]
     Active Substance: HUMAN IMMUNOGLOBULIN G
     Indication: Secondary immunodeficiency
     Dosage: 8 GRAM, BIW
     Route: 065
     Dates: start: 20140314, end: 20221212

REACTIONS (1)
  - Death [Fatal]

NARRATIVE: CASE EVENT DATE: 20221215
